FAERS Safety Report 4838017-5 (Version None)
Quarter: 2005Q4

REPORT INFORMATION
  Report Type: 
  Country: None (occurrence: None)
  Receive Date: 20051123
  Receipt Date: 20051123
  Transmission Date: 20060501
  Serious: No
  Sender: FDA-Public Use
  Company Number: None

PATIENT
  Sex: Female
  Weight: 72.5755 kg

DRUGS (2)
  1. PAXIL [Suspect]
     Indication: CHEST PAIN
     Dosage: 10-20 MG DAILY
     Dates: start: 20040801
  2. PAXIL [Suspect]
     Indication: CHEST PAIN
     Dosage: 10-20 MG DAILY
     Dates: start: 20041001

REACTIONS (10)
  - CHEST PAIN [None]
  - DEPRESSION [None]
  - DIZZINESS [None]
  - FEELING ABNORMAL [None]
  - FEELINGS OF WORTHLESSNESS [None]
  - HEADACHE [None]
  - LETHARGY [None]
  - STRESS [None]
  - STRESS AT WORK [None]
  - WEIGHT INCREASED [None]
